FAERS Safety Report 7480049-5 (Version None)
Quarter: 2011Q2

REPORT INFORMATION
  Report Type: 
  Country: None (occurrence: None)
  Receive Date: 20110516
  Receipt Date: 20110315
  Transmission Date: 20111010
  Serious: No
  Sender: FDA-Public Use
  Company Number: US-BIOGENIDEC-2011BI004732

PATIENT
  Age: 30 Year
  Sex: Female
  Weight: 57 kg

DRUGS (7)
  1. LASIX [Concomitant]
     Indication: SWELLING
  2. SPRINTEC [Concomitant]
     Indication: CONTRACEPTION
  3. WELLBUTRIN XL [Concomitant]
     Indication: PRODUCT USED FOR UNKNOWN INDICATION
  4. NEURONTIN [Concomitant]
     Indication: PRODUCT USED FOR UNKNOWN INDICATION
  5. CELEXA [Concomitant]
     Indication: PRODUCT USED FOR UNKNOWN INDICATION
  6. TYSABRI [Suspect]
     Indication: MULTIPLE SCLEROSIS
     Route: 042
     Dates: start: 20100125
  7. VESICARE [Concomitant]
     Indication: BLADDER DISORDER

REACTIONS (4)
  - BLADDER DISORDER [None]
  - FEMALE STERILISATION [None]
  - CERVICAL LASER THERAPY [None]
  - PAPILLOMA VIRAL INFECTION [None]
